FAERS Safety Report 22132214 (Version 1)
Quarter: 2023Q1

REPORT INFORMATION
  Report Type: Spontaneous
  Country: US (occurrence: US)
  Receive Date: 20230323
  Receipt Date: 20230323
  Transmission Date: 20230418
  Serious: No
  Sender: FDA-Public Use
  Company Number: US-PERRIGO-23US000283

PATIENT
  Age: 74 Year
  Sex: Male
  Weight: 63.492 kg

DRUGS (4)
  1. PSEUDOEPHEDRINE HYDROCHLORIDE [Suspect]
     Active Substance: PSEUDOEPHEDRINE HYDROCHLORIDE
     Indication: Sinus congestion
     Dosage: 120 MG, PRN
     Route: 048
  2. PSEUDOEPHEDRINE HYDROCHLORIDE [Suspect]
     Active Substance: PSEUDOEPHEDRINE HYDROCHLORIDE
     Dosage: 120, MG BID
     Route: 048
     Dates: start: 20230109, end: 20230109
  3. LIOTHYRONINE [Concomitant]
     Active Substance: LIOTHYRONINE
     Indication: Hypothyroidism
     Dosage: 12.5 MCG, QD
     Route: 065
  4. LEVOTHYROXINE [Concomitant]
     Active Substance: LEVOTHYROXINE
     Indication: Hypothyroidism
     Dosage: 75 MCG, QD
     Route: 065

REACTIONS (6)
  - Pollakiuria [Recovering/Resolving]
  - Urinary retention [Recovering/Resolving]
  - Condition aggravated [Not Recovered/Not Resolved]
  - Expired product administered [Unknown]
  - Wrong technique in product usage process [Unknown]
  - Inappropriate schedule of product administration [Unknown]

NARRATIVE: CASE EVENT DATE: 20230109
